FAERS Safety Report 8522539-X (Version None)
Quarter: 2012Q3

REPORT INFORMATION
  Report Type: 
  Country: None (occurrence: None)
  Receive Date: 20120719
  Receipt Date: 20120716
  Transmission Date: 20120928
  Serious: No
  Sender: FDA-Public Use
  Company Number: US-PFIZER INC-2012145197

PATIENT
  Sex: Male
  Weight: 83.9 kg

DRUGS (4)
  1. LYRICA [Suspect]
     Indication: NEURALGIA
     Dosage: 150 MG, 2X/DAY
     Route: 048
  2. OXYCONTIN [Concomitant]
     Indication: NEURALGIA
  3. LAMOTRIGINE [Concomitant]
     Indication: NEURALGIA
     Dosage: UNK
  4. METFORMIN [Concomitant]
     Indication: DIABETES MELLITUS
     Dosage: 500 MG, 1X/DAY

REACTIONS (3)
  - DRUG INEFFECTIVE [None]
  - PARAESTHESIA [None]
  - GAIT DISTURBANCE [None]
